FAERS Safety Report 10272839 (Version 1)
Quarter: 2014Q2

REPORT INFORMATION
  Report Type: Spontaneous
  Country: US (occurrence: None)
  Receive Date: 20140627
  Receipt Date: 20140627
  Transmission Date: 20141212
  Serious: Yes (Hospitalization)
  Sender: FDA-Public Use
  Company Number: None

PATIENT
  Age: 26 Year
  Sex: Female

DRUGS (8)
  1. SUBOXONE (8 MG, 2 MG) [Suspect]
     Indication: SUBSTANCE ABUSE
     Route: 060
  2. ACETAMINOPHEN [Concomitant]
  3. LORAZEPAM [Concomitant]
  4. HYDROMORPHONE [Concomitant]
  5. FENTANYL [Concomitant]
  6. OXYCODONE [Concomitant]
  7. PREGABALIN [Concomitant]
  8. SERTRALINE [Concomitant]

REACTIONS (3)
  - Procedural pain [None]
  - Abdominal pain [None]
  - Inadequate analgesia [None]
